FAERS Safety Report 11158026 (Version 1)
Quarter: 2015Q2

REPORT INFORMATION
  Report Type: Spontaneous
  Country: US (occurrence: None)
  Receive Date: 20150512
  Receipt Date: 20150512
  Transmission Date: 20150821
  Serious: Yes (Hospitalization)
  Sender: FDA-Public Use
  Company Number: 1713747-2015-999144

PATIENT
  Age: 60 Year
  Sex: Male
  Weight: 92 kg

DRUGS (23)
  1. DELFLEX [Suspect]
     Active Substance: CALCIUM CHLORIDE\DEXTROSE MONOHYDRATE\MAGNESIUM CHLORIDE\SODIUM CHLORIDE\SODIUM LACTATE
     Indication: PERITONEAL DIALYSIS
     Dosage: PERITONEAL DIALYSIS
     Route: 033
  2. CARBIDOPA-LEVODOPA [Concomitant]
     Active Substance: CARBIDOPA\LEVODOPA
  3. ONGLYZA [Concomitant]
     Active Substance: SAXAGLIPTIN HYDROCHLORIDE
  4. SODIUM BICARBONATE. [Concomitant]
     Active Substance: SODIUM BICARBONATE
  5. HYDRALAZINE [Concomitant]
     Active Substance: HYDRALAZINE HYDROCHLORIDE
  6. VITAMIN D [Concomitant]
     Active Substance: CHOLECALCIFEROL
  7. LIBERTY CYCLER SET [Concomitant]
     Active Substance: DEVICE
  8. CLONIDINE. [Concomitant]
     Active Substance: CLONIDINE
  9. ASPIRIN. [Concomitant]
     Active Substance: ASPIRIN
  10. WARFARIN [Concomitant]
     Active Substance: WARFARIN
  11. FOLIC ACID. [Concomitant]
     Active Substance: FOLIC ACID
  12. NORVASC [Concomitant]
     Active Substance: AMLODIPINE BESYLATE
  13. ZYLOPRIM [Concomitant]
     Active Substance: ALLOPURINOL
  14. VISION FORMULA [Concomitant]
  15. LIBERTY CYCLER [Concomitant]
     Active Substance: DEVICE
  16. MELATONIN [Concomitant]
     Active Substance: MELATONIN
  17. CILOSTAZOL. [Concomitant]
     Active Substance: CILOSTAZOL
  18. PRAVASTATIN [Concomitant]
     Active Substance: PRAVASTATIN\PRAVASTATIN SODIUM
  19. PHOSLO [Concomitant]
     Active Substance: CALCIUM ACETATE
  20. PROPRANOLOL [Concomitant]
     Active Substance: PROPRANOLOL\PROPRANOLOL HYDROCHLORIDE
  21. LASIX [Concomitant]
     Active Substance: FUROSEMIDE
  22. PRANDIN [Concomitant]
     Active Substance: REPAGLINIDE
  23. LORATADINE. [Concomitant]
     Active Substance: LORATADINE

REACTIONS (1)
  - Peritonitis [None]

NARRATIVE: CASE EVENT DATE: 20140616
